FAERS Safety Report 7197310-4 (Version None)
Quarter: 2010Q4

REPORT INFORMATION
  Report Type: 
  Country: None (occurrence: None)
  Receive Date: 20101209
  Receipt Date: 20101201
  Transmission Date: 20110411
  Serious: Yes (Other)
  Sender: FDA-Public Use
  Company Number: 2010SP062892

PATIENT
  Age: 39 Year
  Sex: Female
  Weight: 50 kg

DRUGS (2)
  1. NUVARING [Suspect]
     Indication: CONTRACEPTION
     Dosage: ; QM; VAG
     Route: 067
     Dates: start: 20101126
  2. TINIDAZOLE [Concomitant]

REACTIONS (4)
  - BREAST MASS [None]
  - FUNGAL INFECTION [None]
  - UTERINE LEIOMYOMA [None]
  - VULVITIS [None]
